FAERS Safety Report 7343131-9 (Version None)
Quarter: 2011Q1

REPORT INFORMATION
  Report Type: 
  Country: None (occurrence: None)
  Receive Date: 20110310
  Receipt Date: 20110307
  Transmission Date: 20110831
  Serious: No
  Sender: FDA-Public Use
  Company Number: US-PFIZER INC-2010179695

PATIENT
  Sex: Female
  Weight: 104.3 kg

DRUGS (6)
  1. SIMVASTATIN [Concomitant]
     Indication: BLOOD CHOLESTEROL INCREASED
     Dosage: UNK
  2. MOBIC [Concomitant]
     Indication: ARTHRITIS
     Dosage: UNK
  3. PROTONIX [Suspect]
     Indication: GASTRITIS
     Dosage: 40 MG, UNK
     Dates: start: 20100917
  4. PROTONIX [Suspect]
     Indication: GASTROOESOPHAGEAL REFLUX DISEASE
     Dosage: 40 MG, DAILY
     Route: 048
     Dates: start: 20100909, end: 20101201
  5. HELIDAC [Concomitant]
     Dosage: UNK
  6. HYDROCHLOROTHIAZIDE [Concomitant]
     Indication: HYPERTENSION
     Dosage: 12.5 MG, UNK

REACTIONS (1)
  - GASTRIC DISORDER [None]
